FAERS Safety Report 6073659-3 (Version None)
Quarter: 2009Q1

REPORT INFORMATION
  Report Type: 
  Country: None (occurrence: None)
  Receive Date: 20090211
  Receipt Date: 20090130
  Transmission Date: 20090719
  Serious: Yes (Death)
  Sender: FDA-Public Use
  Company Number: US-TYCO HEALTHCARE/MALLINCKRODT-T200900208

PATIENT
  Age: 38 Year
  Sex: Male

DRUGS (2)
  1. ACETAMINOPHEN AND CODEINE PHOSPHATE [Suspect]
  2. METFORMIN HCL [Suspect]

REACTIONS (5)
  - ACIDOSIS [None]
  - BLOOD PRESSURE DECREASED [None]
  - COMPLETED SUICIDE [None]
  - DISORIENTATION [None]
  - ELECTROMECHANICAL DISSOCIATION [None]
